FAERS Safety Report 8216723-2 (Version None)
Quarter: 2012Q1

REPORT INFORMATION
  Report Type: 
  Country: None (occurrence: None)
  Receive Date: 20120316
  Receipt Date: 20120313
  Transmission Date: 20120608
  Serious: Yes (Other)
  Sender: FDA-Public Use
  Company Number: CA-ROCHE-1041775

PATIENT
  Sex: Female
  Weight: 74.91 kg

DRUGS (7)
  1. CELEBREX [Concomitant]
  2. PREDNISONE [Concomitant]
  3. ACTONEL [Concomitant]
  4. ACTEMRA [Suspect]
     Indication: RHEUMATOID ARTHRITIS
     Route: 042
     Dates: start: 20110627, end: 20110825
  5. ACTEMRA [Suspect]
     Route: 042
     Dates: start: 20110825
  6. TYLENOL W/ CODEINE NO. 3 [Concomitant]
  7. OXYCODONE HCL [Concomitant]

REACTIONS (2)
  - DEPRESSION [None]
  - BREAST CYST [None]
